FAERS Safety Report 5110071-5 (Version None)
Quarter: 2006Q3

REPORT INFORMATION
  Report Type: 
  Country: None (occurrence: None)
  Receive Date: 20060919
  Receipt Date: 20060919
  Transmission Date: 20061208
  Serious: Yes (Other)
  Sender: FDA-Public Use
  Company Number: None

PATIENT
  Age: 56 Year
  Sex: Female
  Weight: 65.7716 kg

DRUGS (3)
  1. LEVAQUIN [Suspect]
     Indication: BETA HAEMOLYTIC STREPTOCOCCAL INFECTION
     Dosage: 1 X DAY   PO
     Route: 048
     Dates: start: 20060828, end: 20060905
  2. LEVAQUIN [Suspect]
     Indication: INFECTION
     Dosage: 1 X DAY   PO
     Route: 048
     Dates: start: 20060828, end: 20060905
  3. LEVAQUIN [Suspect]
     Indication: URINARY TRACT INFECTION
     Dosage: 1 X DAY   PO
     Route: 048
     Dates: start: 20060828, end: 20060905

REACTIONS (2)
  - INSOMNIA [None]
  - PAIN IN EXTREMITY [None]
